FAERS Safety Report 4681854-0 (Version None)
Quarter: 2005Q2

REPORT INFORMATION
  Report Type: 
  Country: None (occurrence: None)
  Receive Date: 20050602
  Receipt Date: 20050523
  Transmission Date: 20051028
  Serious: Yes (Life-Threatening)
  Sender: FDA-Public Use
  Company Number: 2005079917

PATIENT
  Age: 19 Year
  Sex: Female

DRUGS (4)
  1. DOXYCYCLINE [Suspect]
     Indication: ILL-DEFINED DISORDER
     Dosage: 200 MG (100 MG, 2 IN 1 D), ORAL
     Route: 048
     Dates: start: 20050407, end: 20050408
  2. TRIMETHOPRIM [Concomitant]
  3. CLOTRIMAZOLE (CLOTRIMAZOLE) [Concomitant]
  4. PODOPHYLLOTOXIN (PODOPHYLLOTOXIN) [Concomitant]

REACTIONS (3)
  - PRURITUS GENERALISED [None]
  - RASH [None]
  - SWELLING FACE [None]
